FAERS Safety Report 24065833 (Version 1)
Quarter: 2024Q3

REPORT INFORMATION
  Report Type: Spontaneous
  Country: US (occurrence: US)
  Receive Date: 20240709
  Receipt Date: 20240709
  Transmission Date: 20241017
  Serious: No
  Sender: VIRTUS PHARMACEUTICALS
  Company Number: US-VIRTUS PHARMACEUTICALS, LLC-2023VTS00015

PATIENT
  Sex: Female

DRUGS (2)
  1. PROGESTERONE [Suspect]
     Active Substance: PROGESTERONE
     Dosage: 100 MG, 1X/DAY
     Route: 067
  2. MISOPROSTOL [Concomitant]
     Active Substance: MISOPROSTOL
     Dosage: UNK
     Dates: start: 202302

REACTIONS (5)
  - Skin odour abnormal [Unknown]
  - Off label use [Not Recovered/Not Resolved]
  - Product odour abnormal [Not Recovered/Not Resolved]
  - Product quality issue [Not Recovered/Not Resolved]
  - Unevaluable event [Unknown]

NARRATIVE: CASE EVENT DATE: 20230101
